FAERS Safety Report 14695698 (Version 1)
Quarter: 2018Q1

REPORT INFORMATION
  Report Type: Spontaneous
  Country: US (occurrence: US)
  Receive Date: 20180328
  Receipt Date: 20180328
  Transmission Date: 20180509
  Serious: No
  Sender: FDA-Public Use
  Company Number: None

PATIENT
  Age: 7 Year
  Sex: Male

DRUGS (4)
  1. RISPERIDONE 1MG [Concomitant]
     Active Substance: RISPERIDONE
     Dates: start: 20171028
  2. SERTRALINE [Suspect]
     Active Substance: SERTRALINE HYDROCHLORIDE
     Route: 048
     Dates: start: 20180129, end: 20180322
  3. METHYLPHENIDATE ER 18MG [Concomitant]
     Active Substance: METHYLPHENIDATE
     Dates: start: 20170804
  4. GUAFACINE ER 2MG [Concomitant]
     Dates: start: 20171124

REACTIONS (1)
  - Urinary incontinence [None]

NARRATIVE: CASE EVENT DATE: 20180301
